FAERS Safety Report 23730270 (Version 2)
Quarter: 2024Q3

REPORT INFORMATION
  Report Type: Report from Study
  Country: US (occurrence: US)
  Receive Date: 20240411
  Receipt Date: 20240710
  Transmission Date: 20241016
  Serious: No
  Sender: ALEXION PHARMACEUTICALS
  Company Number: US-ALXN-202404USA000320US

PATIENT
  Sex: Male

DRUGS (1)
  1. STRENSIQ [Suspect]
     Active Substance: ASFOTASE ALFA
     Indication: Product used for unknown indication
     Dosage: 1 OR 2 TIMES A WEEK
     Route: 065

REACTIONS (3)
  - Joint dislocation [Unknown]
  - Skin texture abnormal [Unknown]
  - Injection site reaction [Unknown]
